FAERS Safety Report 10120627 (Version 1)
Quarter: 2014Q2

REPORT INFORMATION
  Report Type: Spontaneous
  Country: US (occurrence: US)
  Receive Date: 20140425
  Receipt Date: 20140425
  Transmission Date: 20141212
  Serious: Yes (Other)
  Sender: FDA-Public Use
  Company Number: US-FRI-1000066748

PATIENT
  Age: 49 Year
  Sex: Female

DRUGS (1)
  1. LINZESS [Suspect]
     Indication: CONSTIPATION
     Dosage: 145 MCG
     Dates: start: 20140415, end: 20140419

REACTIONS (5)
  - Rectal haemorrhage [Not Recovered/Not Resolved]
  - Gastrointestinal pain [Not Recovered/Not Resolved]
  - Tremor [Recovering/Resolving]
  - Agitation [Recovering/Resolving]
  - Abdominal pain upper [Recovering/Resolving]
